FAERS Safety Report 10169460 (Version 1)
Quarter: 2014Q2

REPORT INFORMATION
  Report Type: Spontaneous
  Country: US (occurrence: US)
  Receive Date: 20140513
  Receipt Date: 20140513
  Transmission Date: 20141212
  Serious: No
  Sender: FDA-Public Use
  Company Number: US-PFIZER INC-2014130471

PATIENT
  Age: 56 Year
  Sex: Male

DRUGS (7)
  1. ZOLOFT [Suspect]
     Dosage: UNK
  2. ATENOLOL [Suspect]
     Dosage: UNK
  3. VANCOMYCIN HCL [Suspect]
     Dosage: UNK
  4. CIPRO [Suspect]
     Dosage: UNK
  5. PAMELOR [Suspect]
     Dosage: UNK
  6. CEFADROXIL MONOHYDRATE [Suspect]
     Dosage: UNK
  7. CIPROFLOXACIN HYDROCHLORIDE [Suspect]
     Dosage: UNK

REACTIONS (1)
  - Drug hypersensitivity [Unknown]
